FAERS Safety Report 4273185-8 (Version None)
Quarter: 2004Q1

REPORT INFORMATION
  Report Type: 
  Country: None (occurrence: None)
  Receive Date: 20040116
  Receipt Date: 20030903
  Transmission Date: 20041129
  Serious: Yes (Death, Life-Threatening, Hospitalization)
  Sender: FDA-Public Use
  Company Number: PHRM2003FR02297

PATIENT
  Age: 69 Year
  Sex: Female

DRUGS (9)
  1. TEGRETOL [Suspect]
     Indication: GRAND MAL CONVULSION
     Dosage: 200 MG, BID
     Route: 048
     Dates: start: 20030109, end: 20030121
  2. IXEL [Suspect]
     Indication: DEPRESSION
     Dosage: 50 MG, BID
     Route: 048
     Dates: start: 20030110, end: 20030121
  3. NOROXIN [Suspect]
     Indication: URINARY TRACT INFECTION
     Dosage: 400 MG, BID
     Route: 048
     Dates: start: 20030113, end: 20030118
  4. XANAX [Suspect]
     Dosage: .25 MG, TID
     Dates: start: 20030102, end: 20030121
  5. MODURETIC ^MERCK^ [Concomitant]
     Route: 048
     Dates: start: 20020615, end: 20030121
  6. SOTALEX [Concomitant]
     Dosage: 80 MG, QD
     Route: 048
     Dates: start: 20020615, end: 20030121
  7. COUMADIN [Concomitant]
     Route: 048
     Dates: start: 20020615, end: 20030121
  8. PRIMPERAN TAB [Concomitant]
     Dosage: UNK, UNK
     Route: 048
     Dates: start: 20021230, end: 20030121
  9. OSMOTAN [Concomitant]

REACTIONS (8)
  - ARRHYTHMIA [None]
  - CARDIOGENIC SHOCK [None]
  - DEPRESSION [None]
  - EPILEPSY [None]
  - HEPATIC FAILURE [None]
  - HYPOVOLAEMIA [None]
  - RENAL FAILURE ACUTE [None]
  - URINARY TRACT INFECTION [None]
